FAERS Safety Report 4860568-8 (Version None)
Quarter: 2005Q4

REPORT INFORMATION
  Report Type: 
  Country: None (occurrence: None)
  Receive Date: 20051219
  Receipt Date: 20051209
  Transmission Date: 20060501
  Serious: Yes (Hospitalization)
  Sender: FDA-Public Use
  Company Number: US-MERCK-0512USA02194

PATIENT
  Age: 63 Year
  Sex: Male
  Weight: 105 kg

DRUGS (5)
  1. VIOXX [Suspect]
     Indication: BACK PAIN
     Route: 048
     Dates: start: 19991001, end: 20000901
  2. VIOXX [Suspect]
     Indication: ARTHRALGIA
     Route: 048
     Dates: start: 19991001, end: 20000901
  3. LOPRESSOR [Concomitant]
     Indication: HYPERTENSION
     Route: 065
  4. DYAZIDE [Concomitant]
     Indication: HYPERTENSION
     Route: 065
  5. GLUCOTROL XL [Concomitant]
     Indication: DIABETES MELLITUS
     Route: 065

REACTIONS (16)
  - ANGINA UNSTABLE [None]
  - ARTERIOSCLEROSIS CORONARY ARTERY [None]
  - BLOOD CHOLESTEROL INCREASED [None]
  - BLOOD TRIGLYCERIDES INCREASED [None]
  - CORONARY ARTERY OCCLUSION [None]
  - DEPRESSION [None]
  - HYPERLIPIDAEMIA [None]
  - HYPOTENSION [None]
  - ISCHAEMIC STROKE [None]
  - LACUNAR INFARCTION [None]
  - MYOCARDIAL INFARCTION [None]
  - OEDEMA [None]
  - OVERDOSE [None]
  - PARAESTHESIA [None]
  - PLEURAL EFFUSION [None]
  - TRANSIENT ISCHAEMIC ATTACK [None]
